FAERS Safety Report 8166186-0 (Version None)
Quarter: 2012Q1

REPORT INFORMATION
  Report Type: 
  Country: None (occurrence: None)
  Receive Date: 20120227
  Receipt Date: 20110506
  Transmission Date: 20120608
  Serious: No
  Sender: FDA-Public Use
  Company Number: US-MYLANLABS-2011S1008580

PATIENT
  Age: 22 Year
  Sex: Female

DRUGS (2)
  1. AMNESTEEM [Suspect]
     Indication: ACNE CYSTIC
     Dates: start: 20110203, end: 20110303
  2. AMNESTEEM [Suspect]
     Dates: start: 20110203, end: 20110303

REACTIONS (1)
  - BLOOD TRIGLYCERIDES INCREASED [None]
